FAERS Safety Report 9956585 (Version 1)
Quarter: 2014Q1

REPORT INFORMATION
  Report Type: Report from Study
  Country: US (occurrence: US)
  Receive Date: 20140304
  Receipt Date: 20140304
  Transmission Date: 20141002
  Serious: No
  Sender: FDA-Public Use
  Company Number: US-ABBVIE-13P-163-1092896-00

PATIENT
  Age: 53 Year
  Sex: Male

DRUGS (6)
  1. HUMIRA [Suspect]
     Indication: PSORIASIS
     Route: 058
     Dates: start: 20130510, end: 20130510
  2. HUMIRA [Suspect]
     Route: 058
  3. LEVOTHYROXINE [Concomitant]
     Indication: HYPOTHYROIDISM
  4. GABAPENTIN [Concomitant]
     Indication: EMOTIONAL DISTRESS
  5. SIMVASTATIN [Concomitant]
     Indication: BLOOD CHOLESTEROL
  6. TESTOSTERONE [Concomitant]
     Indication: BLOOD CHOLESTEROL
     Dosage: 1.5 CC, 300 MG
     Route: 030

REACTIONS (3)
  - Incorrect dose administered [Recovering/Resolving]
  - Injection site haemorrhage [Recovering/Resolving]
  - Injection site bruising [Recovering/Resolving]
